FAERS Safety Report 18165485 (Version 1)
Quarter: 2020Q3

REPORT INFORMATION
  Report Type: Spontaneous
  Country: US (occurrence: US)
  Receive Date: 20200818
  Receipt Date: 20200818
  Transmission Date: 20201103
  Serious: No
  Sender: FDA-Public Use
  Company Number: US-IMMUNOMEDICS, INC.-2020IMMU000446

PATIENT
  Age: 60 Year
  Sex: Female

DRUGS (5)
  1. TRODELVY [Suspect]
     Active Substance: SACITUZUMAB GOVITECAN-HZIY
     Dosage: UNK, DAY 1 AND DAY 8 INFUSIONS OF A 21 DAY TREATMENT CYCLE
     Route: 042
     Dates: start: 20200514, end: 20200514
  2. TRODELVY [Suspect]
     Active Substance: SACITUZUMAB GOVITECAN-HZIY
     Dosage: UNK, DAY 1 AND DAY 8 INFUSIONS OF A 21 DAY TREATMENT CYCLE
     Route: 042
     Dates: start: 20200611, end: 20200611
  3. TRODELVY [Suspect]
     Active Substance: SACITUZUMAB GOVITECAN-HZIY
     Dosage: UNK, DAY 1 AND DAY 8 INFUSIONS OF A 21 DAY TREATMENT CYCLE
     Route: 042
     Dates: start: 20200618, end: 20200618
  4. TRODELVY [Suspect]
     Active Substance: SACITUZUMAB GOVITECAN-HZIY
     Dosage: UNK, DAY 1 AND DAY 8 INFUSIONS OF A 21 DAY TREATMENT CYCLE
     Route: 042
     Dates: start: 20200604, end: 20200604
  5. TRODELVY [Suspect]
     Active Substance: SACITUZUMAB GOVITECAN-HZIY
     Dosage: UNK, DAY 1 AND DAY 8 INFUSIONS OF A 21 DAY TREATMENT CYCLE
     Route: 042
     Dates: start: 20200507, end: 20200507

REACTIONS (3)
  - Inappropriate schedule of product administration [Unknown]
  - Product administration error [Unknown]
  - Dizziness [Not Recovered/Not Resolved]

NARRATIVE: CASE EVENT DATE: 20200507
